FAERS Safety Report 7358819-3 (Version None)
Quarter: 2011Q1

REPORT INFORMATION
  Report Type: 
  Country: None (occurrence: None)
  Receive Date: 20110317
  Receipt Date: 20110311
  Transmission Date: 20110831
  Serious: Yes (Other)
  Sender: FDA-Public Use
  Company Number: A0918550A

PATIENT
  Sex: Male

DRUGS (1)
  1. AVODART [Suspect]
     Dosage: .5MG UNKNOWN
     Route: 048

REACTIONS (2)
  - GYNAECOMASTIA [None]
  - BREAST MASS [None]
